FAERS Safety Report 4598759-6 (Version None)
Quarter: 2005Q1

REPORT INFORMATION
  Report Type: 
  Country: None (occurrence: None)
  Receive Date: 20050304
  Receipt Date: 20050224
  Transmission Date: 20050727
  Serious: Yes (Hospitalization)
  Sender: FDA-Public Use
  Company Number: PHFR2005GB01028

PATIENT
  Age: 60 Year
  Sex: Female

DRUGS (1)
  1. CLOZARIL [Suspect]
     Indication: MEDICATION ERROR
     Dosage: 250 MG, ONCE/SINGLE
     Route: 048

REACTIONS (2)
  - ACCIDENTAL EXPOSURE [None]
  - DYSPNOEA [None]
